FAERS Safety Report 6438226-8 (Version None)
Quarter: 2009Q4

REPORT INFORMATION
  Report Type: 
  Country: None (occurrence: None)
  Receive Date: 20091112
  Receipt Date: 20091102
  Transmission Date: 20100525
  Serious: Yes (Other)
  Sender: FDA-Public Use
  Company Number: CHNY2009DE03354

PATIENT
  Sex: Female

DRUGS (1)
  1. SCOPODERM TTS (NCH) [Suspect]
     Indication: MOTION SICKNESS
     Dosage: UNK
     Route: 062
     Dates: start: 20090701, end: 20090701

REACTIONS (5)
  - DIZZINESS [None]
  - MYDRIASIS [None]
  - NAUSEA [None]
  - PERIPHERAL VASCULAR DISORDER [None]
  - VISUAL IMPAIRMENT [None]
